FAERS Safety Report 17707868 (Version 2)
Quarter: 2020Q2

REPORT INFORMATION
  Report Type: Spontaneous
  Country: CH (occurrence: CH)
  Receive Date: 20200424
  Receipt Date: 20200428
  Transmission Date: 20200714
  Serious: Yes (Hospitalization)
  Sender: FDA-Public Use
  Company Number: CH-MYLANLABS-2020M1041272

PATIENT
  Age: 72 Year
  Sex: Male

DRUGS (12)
  1. ALDACTONE [Concomitant]
     Active Substance: SPIRONOLACTONE
     Dosage: 25 MILLIGRAM, BID
     Dates: start: 20200401
  2. CARVEDILOL. [Concomitant]
     Active Substance: CARVEDILOL
     Dosage: 25 MILLIGRAM(1/2-0-1/2-0)
     Dates: start: 20200401
  3. TRILEPTAL [Interacting]
     Active Substance: OXCARBAZEPINE
     Dosage: 750 MILLIGRAM, QD
     Dates: start: 20200327, end: 20200330
  4. TRILEPTAL [Interacting]
     Active Substance: OXCARBAZEPINE
     Dosage: 450 MILLIGRAM, QD
     Dates: start: 20200331, end: 20200331
  5. ENTRESTO [Concomitant]
     Active Substance: SACUBITRIL\VALSARTAN
     Dosage: 100 MILLIGRAM, BID(1-0-1-0)
  6. TOREM [Suspect]
     Active Substance: TORSEMIDE
     Indication: PRODUCT USED FOR UNKNOWN INDICATION
     Dosage: 30 MILLIGRAM, QD
     Dates: start: 201911, end: 20200328
  7. TRILEPTAL [Interacting]
     Active Substance: OXCARBAZEPINE
     Dosage: 450 MILLIGRAM, QD
     Dates: start: 20200312, end: 20200325
  8. TRILEPTAL [Interacting]
     Active Substance: OXCARBAZEPINE
     Dosage: 300 MILLIGRAM, QD
     Dates: start: 20200401, end: 20200408
  9. TRILEPTAL [Interacting]
     Active Substance: OXCARBAZEPINE
     Indication: PRODUCT USED FOR UNKNOWN INDICATION
     Dosage: 300 MILLIGRAM, QD
     Dates: start: 2016, end: 20200311
  10. ALDACTONE [Concomitant]
     Active Substance: SPIRONOLACTONE
     Dosage: 25 MILLIGRAM, QD
     Dates: end: 20200331
  11. ASS CARDIO [Concomitant]
     Active Substance: ASPIRIN
     Dosage: 100 MILLIGRAM, BID(1-0-1-0)
  12. TRILEPTAL [Interacting]
     Active Substance: OXCARBAZEPINE
     Dosage: 1050 MILLIGRAM, QD (300-150-300-300 MG)
     Dates: start: 20200326, end: 20200326

REACTIONS (4)
  - Inappropriate antidiuretic hormone secretion [Recovered/Resolved]
  - Off label use [Recovered/Resolved]
  - Drug interaction [Recovered/Resolved]
  - Hyponatraemia [Recovered/Resolved]

NARRATIVE: CASE EVENT DATE: 2016
